FAERS Safety Report 4602365-4 (Version None)
Quarter: 2005Q1

REPORT INFORMATION
  Report Type: 
  Country: None (occurrence: None)
  Receive Date: 20050307
  Receipt Date: 20050217
  Transmission Date: 20050727
  Serious: Yes (Other)
  Sender: FDA-Public Use
  Company Number: 2005024845

PATIENT
  Age: 81 Year
  Sex: Female
  Weight: 63.5036 kg

DRUGS (2)
  1. DETROL LA [Suspect]
     Indication: INCONTINENCE
     Dosage: ORAL
     Route: 048
     Dates: start: 20020101
  2. INDAPAMIDE [Concomitant]

REACTIONS (7)
  - CEREBROVASCULAR ACCIDENT [None]
  - DRY EYE [None]
  - DRY MOUTH [None]
  - SOMNOLENCE [None]
  - THERAPEUTIC PRODUCT INEFFECTIVE [None]
  - URINARY INCONTINENCE [None]
  - VISION BLURRED [None]
